FAERS Safety Report 18724517 (Version 1)
Quarter: 2021Q1

REPORT INFORMATION
  Report Type: Spontaneous
  Country: US (occurrence: US)
  Receive Date: 20210110
  Receipt Date: 20210110
  Transmission Date: 20210419
  Serious: No
  Sender: FDA-Public Use
  Company Number: None

PATIENT
  Age: 35 Year

DRUGS (1)
  1. BUPRENORPHINE/NALOXONE [Suspect]
     Active Substance: BUPRENORPHINE\NALOXONE
     Indication: DRUG USE DISORDER
     Dosage: ?          OTHER FREQUENCY:ALL FREQUENCIES;?
     Route: 060
     Dates: start: 20210110, end: 20210110

REACTIONS (5)
  - Product substitution issue [None]
  - Nausea [None]
  - Withdrawal syndrome [None]
  - Lethargy [None]
  - Anxiety [None]

NARRATIVE: CASE EVENT DATE: 20210110
